FAERS Safety Report 6169937-X (Version None)
Quarter: 2009Q2

REPORT INFORMATION
  Report Type: 
  Country: None (occurrence: None)
  Receive Date: 20090428
  Receipt Date: 20090416
  Transmission Date: 20091009
  Serious: Yes (Hospitalization)
  Sender: FDA-Public Use
  Company Number: DE-PFIZER INC-2009199715

PATIENT

DRUGS (7)
  1. NEURONTIN [Interacting]
     Indication: PAIN
     Dosage: 300 UNK, 3X/DAY
     Route: 048
     Dates: start: 20030401
  2. MST-30 - SLOW RELEASE [Suspect]
     Indication: PAIN
     Dosage: 30 UNK, 2X/DAY
     Route: 048
     Dates: start: 20080715, end: 20080718
  3. AMLODIPINE BESILATE [Concomitant]
     Indication: HYPERTENSION
     Dosage: 5 UNK, 1X/DAY
     Route: 048
     Dates: start: 20030101
  4. ACETYLSALICYLIC ACID [Concomitant]
     Indication: PERIPHERAL ARTERIAL OCCLUSIVE DISEASE
     Dosage: 100 UNK, 1X/DAY
     Route: 048
     Dates: start: 20060101
  5. ALLOPURINOL [Concomitant]
     Indication: RENAL IMPAIRMENT
     Dosage: 100 UNK, 1X/DAY
     Route: 048
     Dates: start: 20000101
  6. PANTOZOL [Concomitant]
     Indication: PROPHYLAXIS AGAINST GASTROINTESTINAL ULCER
     Dosage: 40 UNK, 1X/DAY
     Route: 048
     Dates: start: 19970101
  7. PREDNISOLONE [Concomitant]
     Indication: SYSTEMIC LUPUS ERYTHEMATOSUS
     Dosage: UNK
     Route: 048
     Dates: start: 19970101

REACTIONS (2)
  - DISTURBANCE IN ATTENTION [None]
  - DRUG INTERACTION [None]
